FAERS Safety Report 5850900-0 (Version None)
Quarter: 2008Q3

REPORT INFORMATION
  Report Type: 
  Country: None (occurrence: None)
  Receive Date: 20080820
  Receipt Date: 20080812
  Transmission Date: 20090109
  Serious: Yes (Hospitalization)
  Sender: FDA-Public Use
  Company Number: JP-ABBOTT-08P-087-0470340-00

PATIENT
  Age: 59 Year
  Sex: Male
  Weight: 65.6 kg

DRUGS (7)
  1. CLARITH TABLETS [Suspect]
     Indication: BRONCHITIS
     Route: 048
     Dates: start: 20080519, end: 20080522
  2. THEOPHYLLINE [Suspect]
     Indication: BRONCHITIS
     Route: 048
     Dates: start: 20080519, end: 20080522
  3. REBAMIPIDE [Suspect]
     Indication: BRONCHITIS
     Route: 048
     Dates: start: 20080519, end: 20080522
  4. TIPEPIDINE HIBENZATE [Suspect]
     Indication: BRONCHITIS
     Route: 048
     Dates: start: 20080519, end: 20080522
  5. CLEMASTINE FUMARATE [Suspect]
     Indication: BRONCHITIS
     Route: 048
     Dates: start: 20080519, end: 20080522
  6. PROCATEROL HCL [Suspect]
     Indication: BRONCHITIS
     Route: 048
     Dates: start: 20080519, end: 20080522
  7. TEPRENONE [Suspect]
     Indication: BRONCHITIS
     Route: 048
     Dates: start: 20080519, end: 20080522

REACTIONS (6)
  - AGRANULOCYTOSIS [None]
  - FEBRILE NEUTROPENIA [None]
  - HORDEOLUM [None]
  - LEUKOPENIA [None]
  - PYREXIA [None]
  - STOMATITIS [None]
